FAERS Safety Report 20775590 (Version 1)
Quarter: 2022Q2

REPORT INFORMATION
  Report Type: Spontaneous
  Country: US (occurrence: US)
  Receive Date: 20220502
  Receipt Date: 20220502
  Transmission Date: 20220721
  Serious: No
  Sender: FDA-Public Use
  Company Number: US-PFIZER INC-202101035671

PATIENT

DRUGS (3)
  1. LYRICA [Suspect]
     Active Substance: PREGABALIN
     Indication: Fibromyalgia
     Dosage: UNK
  2. LORAZEPAM [Suspect]
     Active Substance: LORAZEPAM
     Dosage: UNK
  3. ZOLPIDEM [Suspect]
     Active Substance: ZOLPIDEM TARTRATE
     Indication: Insomnia
     Dosage: UNK

REACTIONS (1)
  - Dyspnoea [Unknown]
